FAERS Safety Report 24106410 (Version 2)
Quarter: 2024Q3

REPORT INFORMATION
  Report Type: Spontaneous
  Country: US (occurrence: US)
  Receive Date: 20240717
  Receipt Date: 20240925
  Transmission Date: 20241017
  Serious: No
  Sender: LUNDBECK
  Company Number: US-LUNDBECK-DKLU4000998

PATIENT

DRUGS (1)
  1. SABRIL [Suspect]
     Active Substance: VIGABATRIN
     Indication: Infantile spasms
     Dosage: 13 MILLILITRE
     Route: 048
     Dates: start: 202406

REACTIONS (2)
  - Rash [Recovered/Resolved]
  - Dry skin [Recovered/Resolved]
